FAERS Safety Report 15147821 (Version 2)
Quarter: 2018Q3

REPORT INFORMATION
  Report Type: Spontaneous
  Country: US (occurrence: US)
  Receive Date: 20180716
  Receipt Date: 20180918
  Transmission Date: 20181010
  Serious: No
  Sender: FDA-Public Use
  Company Number: US-ASTRAZENECA-2018SE81018

PATIENT
  Age: 704 Month
  Sex: Female
  Weight: 111.1 kg

DRUGS (1)
  1. BYDUREON BCISE [Suspect]
     Active Substance: EXENATIDE
     Indication: TYPE 2 DIABETES MELLITUS
     Route: 058
     Dates: start: 20180302

REACTIONS (5)
  - Injection site pruritus [Unknown]
  - Injection site nodule [Unknown]
  - Injection site mass [Recovered/Resolved]
  - Blood glucose abnormal [Unknown]
  - Drug ineffective [Not Recovered/Not Resolved]

NARRATIVE: CASE EVENT DATE: 201803
